FAERS Safety Report 15465599 (Version 1)
Quarter: 2018Q4

REPORT INFORMATION
  Report Type: Spontaneous
  Country: JP (occurrence: JP)
  Receive Date: 20181004
  Receipt Date: 20181004
  Transmission Date: 20190204
  Serious: Yes (Other)
  Sender: FDA-Public Use
  Company Number: JP-BAYER-2018-180800

PATIENT

DRUGS (1)
  1. BAYASPIRIN 100 MG [Suspect]
     Active Substance: ASPIRIN
     Route: 064

REACTIONS (4)
  - Foetal growth restriction [None]
  - Low birth weight baby [None]
  - Foetal exposure during pregnancy [None]
  - Premature baby [None]
